FAERS Safety Report 7492030-0 (Version None)
Quarter: 2011Q2

REPORT INFORMATION
  Report Type: 
  Country: None (occurrence: None)
  Receive Date: 20110519
  Receipt Date: 20110510
  Transmission Date: 20111010
  Serious: Yes (Other)
  Sender: FDA-Public Use
  Company Number: US-ASTRAZENECA-2011SE20821

PATIENT
  Age: 45 Year
  Sex: Male
  Weight: 106.1 kg

DRUGS (1)
  1. SEROQUEL [Suspect]
     Indication: INSOMNIA
     Route: 048
     Dates: start: 20100101

REACTIONS (10)
  - BLOOD CHOLESTEROL INCREASED [None]
  - CONFUSIONAL STATE [None]
  - INSOMNIA [None]
  - INCREASED APPETITE [None]
  - OFF LABEL USE [None]
  - DRUG DOSE OMISSION [None]
  - GUN SHOT WOUND [None]
  - TACHYPHRENIA [None]
  - HYPERTENSION [None]
  - WEIGHT INCREASED [None]
